FAERS Safety Report 5685313-8 (Version None)
Quarter: 2008Q1

REPORT INFORMATION
  Report Type: 
  Country: None (occurrence: None)
  Receive Date: 20080328
  Receipt Date: 20080317
  Transmission Date: 20080703
  Serious: Yes (Other)
  Sender: FDA-Public Use
  Company Number: US-PFIZER INC-2008024548

PATIENT
  Sex: Female
  Weight: 63.636 kg

DRUGS (2)
  1. LYRICA [Suspect]
     Indication: OSTEOPOROSIS
  2. SIMVASTATIN [Concomitant]

REACTIONS (2)
  - CATARACT OPERATION [None]
  - VISION BLURRED [None]
